FAERS Safety Report 10779136 (Version 7)
Quarter: 2016Q1

REPORT INFORMATION
  Report Type: Report from Study
  Country: DE (occurrence: DE)
  Receive Date: 20150210
  Receipt Date: 20160329
  Transmission Date: 20160525
  Serious: Yes (Hospitalization)
  Sender: FDA-Public Use
  Company Number: DE-JNJFOC-20150201523

PATIENT
  Age: 30 Year
  Sex: Male
  Weight: 68 kg

DRUGS (5)
  1. PANTOZOL [Concomitant]
     Active Substance: PANTOPRAZOLE SODIUM
     Indication: GASTROINTESTINAL DISORDER THERAPY
     Route: 048
     Dates: start: 20140818, end: 20140829
  2. PARACETAMOL [Concomitant]
     Active Substance: ACETAMINOPHEN
     Indication: PAIN
     Route: 048
     Dates: start: 20140818, end: 20140829
  3. PENTALGIN [Concomitant]
     Indication: PAIN
     Route: 042
     Dates: start: 20141110, end: 20141115
  4. PENTALGIN [Concomitant]
     Indication: PYREXIA
     Route: 042
     Dates: start: 20141110, end: 20141115
  5. REMICADE [Suspect]
     Active Substance: INFLIXIMAB
     Indication: COLITIS ULCERATIVE
     Route: 042
     Dates: start: 20100621, end: 20100731

REACTIONS (3)
  - Colitis [Recovered/Resolved]
  - Intestinal anastomosis [Recovered/Resolved]
  - Colitis ulcerative [Recovered/Resolved]

NARRATIVE: CASE EVENT DATE: 20140818
